FAERS Safety Report 8240788-5 (Version None)
Quarter: 2012Q1

REPORT INFORMATION
  Report Type: 
  Country: None (occurrence: None)
  Receive Date: 20120328
  Receipt Date: 20120322
  Transmission Date: 20120608
  Serious: Yes (Other)
  Sender: FDA-Public Use
  Company Number: PHHY2012NO025068

PATIENT
  Sex: Female

DRUGS (11)
  1. ACETAMINOPHEN [Concomitant]
     Indication: PAIN
     Dosage: UP TO 3 TIMES A DAY
     Route: 048
  2. LEVOTHYROXINE SODIUM [Concomitant]
     Dosage: UNK UKN, UNK
  3. LIPITOR [Concomitant]
     Dosage: 40 MG, QD
     Route: 048
  4. METHOTREXATE [Concomitant]
     Indication: RHEUMATOID ARTHRITIS
     Dosage: 15 MG, UNK
     Route: 048
  5. HIPREX [Concomitant]
     Indication: PROPHYLAXIS URINARY TRACT INFECTION
     Dosage: 1 G, BID
     Route: 048
  6. FLUTICASONE PROPIONATE/SALMETEROL [Concomitant]
     Dosage: UNK UKN, UNK
  7. IMOVANE [Concomitant]
     Dosage: 7.5 MG, QD
     Route: 048
  8. BRICANYL [Concomitant]
     Dosage: UNK UKN, UNK
  9. CALCIGRAN [Concomitant]
     Dosage: 1 DF, BID
  10. ZOLEDRONOC ACID [Suspect]
     Indication: OSTEOPOROSIS
     Dosage: 5 MG, UNK
     Route: 042
     Dates: start: 20110323
  11. ADALAT [Concomitant]
     Indication: HYPERTENSION
     Dosage: 30 MG, QD
     Route: 048

REACTIONS (5)
  - WEIGHT DECREASED [None]
  - MUSCULAR WEAKNESS [None]
  - FATIGUE [None]
  - INFLUENZA LIKE ILLNESS [None]
  - DYSSTASIA [None]
